FAERS Safety Report 7171314-X (Version None)
Quarter: 2010Q4

REPORT INFORMATION
  Report Type: 
  Country: None (occurrence: None)
  Receive Date: 20101123
  Receipt Date: 20100726
  Transmission Date: 20110411
  Serious: No
  Sender: FDA-Public Use
  Company Number: 016187

PATIENT
  Sex: Female

DRUGS (3)
  1. CIMZIA [Suspect]
     Indication: CROHN'S DISEASE
     Dosage: (400 MG 1X/2 WEEKS SUBCUTANEOUS)
     Route: 058
     Dates: start: 20100710
  2. VICODIN [Concomitant]
  3. IMURAN [Concomitant]

REACTIONS (2)
  - ABDOMINAL PAIN LOWER [None]
  - BODY TEMPERATURE INCREASED [None]
